FAERS Safety Report 15823542 (Version 1)
Quarter: 2019Q1

REPORT INFORMATION
  Report Type: Spontaneous
  Country: US (occurrence: US)
  Receive Date: 20190114
  Receipt Date: 20190114
  Transmission Date: 20190417
  Serious: No
  Sender: FDA-Public Use
  Company Number: US-SA-2019SA008157

PATIENT
  Age: 55 Year
  Sex: Male

DRUGS (1)
  1. TOUJEO [Suspect]
     Active Substance: INSULIN GLARGINE
     Indication: TYPE 2 DIABETES MELLITUS
     Dosage: 150 UNITS OF TOUJEO A DAY, SPLIT INTO 2 INJECTIONS OF 80 UNITS AND 70 UNITS
     Route: 065

REACTIONS (2)
  - Product dose omission [Unknown]
  - Device operational issue [Unknown]
